FAERS Safety Report 7820390-7 (Version None)
Quarter: 2011Q4

REPORT INFORMATION
  Report Type: 
  Country: None (occurrence: None)
  Receive Date: 20111018
  Receipt Date: 20111006
  Transmission Date: 20120403
  Serious: Yes (Hospitalization)
  Sender: FDA-Public Use
  Company Number: US-NOVOPROD-332663

PATIENT
  Sex: Male
  Weight: 196.46 kg

DRUGS (7)
  1. LIRAGLUTIDE FLEXPEN [Suspect]
     Dosage: 3.0 MG, QD
     Route: 058
     Dates: start: 20110722, end: 20110725
  2. LIRAGLUTIDE FLEXPEN [Suspect]
     Indication: OBESITY
     Dosage: 0.6 MG, QD
     Route: 058
     Dates: start: 20110624, end: 20110630
  3. LIRAGLUTIDE FLEXPEN [Suspect]
     Dosage: 1.2 MG, QD
     Dates: start: 20110701, end: 20110707
  4. IBUPROFEN [Concomitant]
     Indication: ARTHRALGIA
     Dosage: UNK
     Route: 048
  5. LIRAGLUTIDE FLEXPEN [Suspect]
     Dosage: 2.4 MG, QD
     Dates: start: 20110715, end: 20110721
  6. LIRAGLUTIDE FLEXPEN [Suspect]
     Dosage: 1.8 MG, QD
     Dates: start: 20110708, end: 20110714
  7. LIRAGLUTIDE FLEXPEN [Suspect]
     Dosage: 3 MG, QD
     Route: 058
     Dates: start: 20110624, end: 20110725

REACTIONS (2)
  - HEPATITIS [None]
  - PANCREATITIS [None]
